FAERS Safety Report 4495363-5 (Version None)
Quarter: 2004Q4

REPORT INFORMATION
  Report Type: 
  Country: None (occurrence: None)
  Receive Date: 20041108
  Receipt Date: 20040923
  Transmission Date: 20050328
  Serious: Yes (Hospitalization)
  Sender: FDA-Public Use
  Company Number: US-BRISTOL-MYERS SQUIBB COMPANY-12710901

PATIENT
  Age: 30 Year
  Sex: Male

DRUGS (3)
  1. ABILIFY [Suspect]
     Indication: SCHIZOPHRENIA
     Dosage: 21-SEP-04 REDUCED TO 10 MG 2 X DAY FOR 2 DAYS; 23-SEP-04 10 MG AM, 5 MG PM
     Route: 048
  2. ATIVAN [Concomitant]
  3. LITHIUM [Concomitant]

REACTIONS (2)
  - ANAEMIA [None]
  - SPLENIC INJURY [None]
